FAERS Safety Report 19877079 (Version 1)
Quarter: 2021Q3

REPORT INFORMATION
  Report Type: Spontaneous
  Country: US (occurrence: US)
  Receive Date: 20210924
  Receipt Date: 20210924
  Transmission Date: 20211014
  Serious: No
  Sender: FDA-Public Use
  Company Number: US-LUNDBECK-DKLU3038777

PATIENT
  Age: 64 Year
  Sex: Female

DRUGS (5)
  1. VYEPTI [Suspect]
     Active Substance: EPTINEZUMAB-JJMR
     Route: 041
  2. NURTEC ODT [Concomitant]
     Active Substance: RIMEGEPANT SULFATE
     Indication: PRODUCT USED FOR UNKNOWN INDICATION
     Route: 065
  3. VYEPTI [Suspect]
     Active Substance: EPTINEZUMAB-JJMR
     Route: 041
  4. UBRELVY [Concomitant]
     Active Substance: UBROGEPANT
     Indication: PRODUCT USED FOR UNKNOWN INDICATION
     Route: 065
  5. VYEPTI [Suspect]
     Active Substance: EPTINEZUMAB-JJMR
     Indication: MIGRAINE
     Route: 041
     Dates: start: 20201021

REACTIONS (1)
  - Product dose omission issue [Unknown]
